FAERS Safety Report 10397835 (Version 3)
Quarter: 2015Q4

REPORT INFORMATION
  Report Type: Report from Study
  Country: FR (occurrence: FR)
  Receive Date: 20140821
  Receipt Date: 20151119
  Transmission Date: 20160304
  Serious: Yes (Death, Life-Threatening, Hospitalization)
  Sender: FDA-Public Use
  Company Number: FR-ROCHE-1451035

PATIENT
  Age: 57 Year
  Sex: Male
  Weight: 98.5 kg

DRUGS (16)
  1. RITUXIMAB [Suspect]
     Active Substance: RITUXIMAB
     Indication: CENTRAL NERVOUS SYSTEM LYMPHOMA
     Dosage: LAST DOSE OF MABTHERA BEFORE EVENT ADMINISTERED WAS 750 MG. CUMULATIVE DOSE OF MABTHERA SINCE?THE 1S
     Route: 042
  2. IMOVANE [Concomitant]
     Active Substance: ZOPICLONE
     Route: 065
  3. METFORMIN [Concomitant]
     Active Substance: METFORMIN HYDROCHLORIDE
     Route: 065
  4. BUSULFAN [Suspect]
     Active Substance: BUSULFAN
     Indication: CENTRAL NERVOUS SYSTEM LYMPHOMA
     Dosage: LAST DOSE ADMINISTERED WAS 230.4 MG
     Route: 065
     Dates: start: 20140718, end: 20140720
  5. CYCLOPHOSPHAMIDE. [Suspect]
     Active Substance: CYCLOPHOSPHAMIDE
     Indication: CENTRAL NERVOUS SYSTEM LYMPHOMA
     Dosage: LAST DOSE ADMINISTERED 5160 MG
     Route: 065
     Dates: start: 20140721, end: 20140722
  6. PREDNISOLONE. [Concomitant]
     Active Substance: PREDNISOLONE
  7. CALCIDOSE VITAMINE D [Concomitant]
     Active Substance: CALCIUM\CHOLECALCIFEROL
     Route: 065
  8. PERFALGAN [Concomitant]
     Active Substance: ACETAMINOPHEN
     Dosage: 1G THREE TIMES DAILY IN CASE OF FEVER BAD TOLERATED
     Route: 065
  9. METHOTREXATE [Concomitant]
     Active Substance: METHOTREXATE
  10. CYTARABINE. [Concomitant]
     Active Substance: CYTARABINE
  11. DIAMICRON [Concomitant]
     Active Substance: GLICLAZIDE
     Route: 065
  12. ATARAX [Concomitant]
     Active Substance: HYDROXYZINE\HYDROXYZINE HYDROCHLORIDE
     Route: 065
  13. BICNU [Concomitant]
     Active Substance: CARMUSTINE
  14. THIOTEPA. [Suspect]
     Active Substance: THIOTEPA
     Indication: CENTRAL NERVOUS SYSTEM LYMPHOMA
     Dosage: LAST DOSE ADMINISTERED WAS 500 MG
     Route: 065
     Dates: start: 20140715, end: 20140717
  15. VINCRISTINE [Concomitant]
     Active Substance: VINCRISTINE
  16. MECIR [Concomitant]
     Active Substance: TAMSULOSIN HYDROCHLORIDE
     Dosage: 0.4 UNIT NOT REPORTED
     Route: 065

REACTIONS (3)
  - Coma [Recovered/Resolved]
  - Septic shock [Fatal]
  - Septic shock [Recovered/Resolved]

NARRATIVE: CASE EVENT DATE: 20140813
